FAERS Safety Report 9781585 (Version 1)
Quarter: 2013Q4

REPORT INFORMATION
  Report Type: Spontaneous
  Country: US (occurrence: None)
  Receive Date: 20131223
  Receipt Date: 20131223
  Transmission Date: 20140711
  Serious: Yes (Hospitalization)
  Sender: FDA-Public Use
  Company Number: None

PATIENT
  Age: 52 Year
  Sex: Male
  Weight: 128.6 kg

DRUGS (2)
  1. WARFARIN [Suspect]
     Indication: ATRIAL FIBRILLATION
     Route: 048
     Dates: start: 20130702, end: 20131026
  2. GEMFIBROZIL [Suspect]
     Route: 048
     Dates: start: 20060317, end: 20131026

REACTIONS (3)
  - Drug interaction [None]
  - International normalised ratio increased [None]
  - Haematuria [None]
